FAERS Safety Report 21227162 (Version 1)
Quarter: 2022Q3

REPORT INFORMATION
  Report Type: Spontaneous
  Country: GB (occurrence: GB)
  Receive Date: 20220818
  Receipt Date: 20220818
  Transmission Date: 20221026
  Serious: Yes (Other)
  Sender: FDA-Public Use
  Company Number: None

PATIENT
  Age: 64 Year
  Sex: Female
  Weight: 58.20 kg

DRUGS (6)
  1. ATORVASTATIN [Suspect]
     Active Substance: ATORVASTATIN
     Indication: Product used for unknown indication
     Route: 048
  2. NITROGLYCERIN [Concomitant]
     Active Substance: NITROGLYCERIN
     Dosage: 1-2 SPRAY UNDER THE TONGUE WHEN REQUIRED AS ADVISED ONE RX WAS EXPIRING IN JUNE 2022
     Dates: start: 20220530
  3. NAPROXEN [Concomitant]
     Active Substance: NAPROXEN
     Dosage: TAKE 1 OR 2 TWICE A DAY
     Dates: start: 20220704
  4. AMLODIPINE [Concomitant]
     Active Substance: AMLODIPINE BESYLATE
     Dosage: 1 TABLET ONCE A DAY
     Dates: start: 20220530
  5. COCODAMOL [Concomitant]
     Active Substance: ACETAMINOPHEN\CODEINE PHOSPHATE
     Dosage: TAKE 1OR 2 TABLETS 6 HOURLY AS REQUIRED UPTO A MAXIMUM OF 8 TABLETS IN 24 HOUR, 8MG/500MG
     Dates: start: 20220713
  6. COCODAMOL [Concomitant]
     Active Substance: ACETAMINOPHEN\CODEINE PHOSPHATE
     Dosage: TAKE 1OR 2 TABLETS 6 HOURLY AS REQUIRED UPTO A MAXIMUM OF 8 TABLETS IN 24 HOUR
     Dates: start: 20220704

REACTIONS (1)
  - Liver disorder [Recovered/Resolved]

NARRATIVE: CASE EVENT DATE: 20220421
